FAERS Safety Report 9839806 (Version 1)
Quarter: 2014Q1

REPORT INFORMATION
  Report Type: Spontaneous
  Country: HU (occurrence: HU)
  Receive Date: 20140124
  Receipt Date: 20140124
  Transmission Date: 20141002
  Serious: Yes (Hospitalization, Other)
  Sender: FDA-Public Use
  Company Number: HU-IPSEN BIOPHARMACEUTICALS, INC.-2013-5830

PATIENT
  Sex: Female

DRUGS (1)
  1. DYSPORT [Suspect]
     Indication: PRODUCT USED FOR UNKNOWN INDICATION
     Dosage: NOT REPORTED
     Route: 065

REACTIONS (21)
  - Hypoaesthesia [Unknown]
  - Muscle twitching [Unknown]
  - Chills [Unknown]
  - Malaise [Unknown]
  - Hallucination [Unknown]
  - Fear [Unknown]
  - Confusional state [Unknown]
  - Periorbital contusion [Unknown]
  - Eyelid ptosis [Unknown]
  - Eyelid oedema [Unknown]
  - Oral candidiasis [Unknown]
  - Upper respiratory tract infection [Unknown]
  - Lymphadenopathy [Unknown]
  - Sinusitis [Unknown]
  - Otitis media [Unknown]
  - Diarrhoea [Unknown]
  - Fatigue [Unknown]
  - Musculoskeletal discomfort [Unknown]
  - Feeling abnormal [Unknown]
  - Allergy to chemicals [Unknown]
  - Neuralgia [Unknown]
